FAERS Safety Report 11578378 (Version 2)
Quarter: 2015Q4

REPORT INFORMATION
  Report Type: Spontaneous
  Country: US (occurrence: US)
  Receive Date: 20150930
  Receipt Date: 20151020
  Transmission Date: 20160304
  Serious: Yes (Hospitalization)
  Sender: FDA-Public Use
  Company Number: US-SMITH AND NEPHEW, INC-2015SMT00353

PATIENT
  Sex: Female

DRUGS (1)
  1. REGRANEX [Suspect]
     Active Substance: BECAPLERMIN
     Indication: WOUND
     Dosage: UNK

REACTIONS (5)
  - Nervousness [Unknown]
  - Off label use [Unknown]
  - Infection [Unknown]
  - Wound complication [Unknown]
  - Limb injury [Unknown]
